FAERS Safety Report 12698901 (Version 1)
Quarter: 2016Q3

REPORT INFORMATION
  Report Type: Spontaneous
  Country: US (occurrence: US)
  Receive Date: 20160830
  Receipt Date: 20160830
  Transmission Date: 20161109
  Serious: No
  Sender: FDA-Public Use
  Company Number: US-GLAXOSMITHKLINE-US2016122900

PATIENT
  Sex: Female

DRUGS (3)
  1. BUDESONIDE. [Concomitant]
     Active Substance: BUDESONIDE
     Route: 055
  2. BROVANA [Concomitant]
     Active Substance: ARFORMOTEROL TARTRATE
     Route: 055
  3. VENTOLIN HFA [Suspect]
     Active Substance: ALBUTEROL SULFATE
     Indication: CHRONIC OBSTRUCTIVE PULMONARY DISEASE
     Dosage: 2 PUFF(S), PRN
     Route: 055

REACTIONS (2)
  - Product cleaning inadequate [Unknown]
  - Dyspnoea [Recovered/Resolved]
